FAERS Safety Report 17014786 (Version 1)
Quarter: 2019Q4

REPORT INFORMATION
  Report Type: Spontaneous
  Country: US (occurrence: US)
  Receive Date: 20191108
  Receipt Date: 20191108
  Transmission Date: 20200122
  Serious: Yes (Hospitalization, Other)
  Sender: FDA-Public Use
  Company Number: None

PATIENT
  Age: 10 Month
  Sex: Male
  Weight: 11 kg

DRUGS (3)
  1. LUBIPROSTONE [Suspect]
     Active Substance: LUBIPROSTONE
     Indication: CONSTIPATION
     Dosage: ?          OTHER FREQUENCY:ONCE;?
     Route: 048
     Dates: start: 20191031, end: 20191031
  2. BISACODYL SUPPOSITORY [Concomitant]
     Active Substance: BISACODYL
     Dates: start: 20191025, end: 20191107
  3. METHYLNALTREXONE [Concomitant]
     Active Substance: METHYLNALTREXONE
     Dates: start: 20191024

REACTIONS (6)
  - Agitation [None]
  - Mechanical ventilation [None]
  - Tachycardia [None]
  - Hypertension [None]
  - Tachypnoea [None]
  - Pneumatosis intestinalis [None]

NARRATIVE: CASE EVENT DATE: 20191107
